FAERS Safety Report 15247895 (Version 1)
Quarter: 2018Q3

REPORT INFORMATION
  Report Type: Spontaneous
  Country: US (occurrence: US)
  Receive Date: 20180714
  Receipt Date: 20180714
  Transmission Date: 20181010
  Serious: Yes (Disabling, Other)
  Sender: FDA-Public Use
  Company Number: None

PATIENT
  Age: 26 Year
  Sex: Female
  Weight: 67.5 kg

DRUGS (5)
  1. PROBIOTICS [Concomitant]
     Active Substance: PROBIOTICS NOS
  2. CIPROFLOXACIN HCL [Suspect]
     Active Substance: CIPROFLOXACIN HYDROCHLORIDE
     Indication: URINARY TRACT INFECTION
     Dosage: ?          QUANTITY:1 DF DOSAGE FORM;?
     Dates: start: 20180710, end: 20180712
  3. OMEGA?3 ACIDS [Concomitant]
     Active Substance: OMEGA-3 FATTY ACIDS
  4. COLLAGEN [Concomitant]
     Active Substance: COLLAGEN
  5. MAGNESIUM [Concomitant]
     Active Substance: MAGNESIUM

REACTIONS (18)
  - Dizziness [None]
  - Presyncope [None]
  - Nail bed disorder [None]
  - Feeling abnormal [None]
  - Dry mouth [None]
  - Dehydration [None]
  - Tachycardia [None]
  - Chills [None]
  - Musculoskeletal stiffness [None]
  - Hypotension [None]
  - Arthralgia [None]
  - Vertigo [None]
  - Hyperhidrosis [None]
  - Condition aggravated [None]
  - Headache [None]
  - Myalgia [None]
  - Pallor [None]
  - Fatigue [None]

NARRATIVE: CASE EVENT DATE: 20180712
